FAERS Safety Report 11986673 (Version 1)
Quarter: 2016Q1

REPORT INFORMATION
  Report Type: Spontaneous
  Country: US (occurrence: US)
  Receive Date: 20160202
  Receipt Date: 20160202
  Transmission Date: 20160526
  Serious: No
  Sender: FDA-Public Use
  Company Number: US-UCBSA-2015004385

PATIENT
  Age: 34 Year
  Sex: Female

DRUGS (1)
  1. KEPPRA [Suspect]
     Active Substance: LEVETIRACETAM
     Indication: PRODUCT USED FOR UNKNOWN INDICATION
     Dosage: 2000 A DAY

REACTIONS (5)
  - Mood swings [Unknown]
  - Fatigue [Unknown]
  - Menstrual disorder [Unknown]
  - Weight increased [Unknown]
  - Vaginal discharge [Recovered/Resolved]
